FAERS Safety Report 18644704 (Version 1)
Quarter: 2020Q4

REPORT INFORMATION
  Report Type: Spontaneous
  Country: US (occurrence: US)
  Receive Date: 20201221
  Receipt Date: 20201221
  Transmission Date: 20210114
  Serious: No
  Sender: FDA-Public Use
  Company Number: US-BIOHAVEN PHARMACEUTICALS-2020BHV00771

PATIENT
  Age: 44 Year
  Sex: Female
  Weight: 68.03 kg

DRUGS (4)
  1. NURTEC ODT [Suspect]
     Active Substance: RIMEGEPANT SULFATE
     Indication: MIGRAINE
     Dosage: 75 MG, ONCE
     Route: 060
     Dates: start: 2020, end: 2020
  2. PROPRANOLOL EXTENDED RELEASE [Suspect]
     Active Substance: PROPRANOLOL HYDROCHLORIDE
     Dosage: 60 MG, 1X/DAY
  3. NURTEC ODT [Suspect]
     Active Substance: RIMEGEPANT SULFATE
     Dosage: 75 MG, ONCE
     Route: 060
     Dates: start: 20201104, end: 20201104
  4. TARGET STORE BRAND MULTI WOMAN [Concomitant]

REACTIONS (1)
  - Drug screen positive [Recovered/Resolved]

NARRATIVE: CASE EVENT DATE: 20201106
